FAERS Safety Report 22140704 (Version 1)
Quarter: 2023Q1

REPORT INFORMATION
  Report Type: Spontaneous
  Country: CA (occurrence: CA)
  Receive Date: 20230327
  Receipt Date: 20230327
  Transmission Date: 20230417
  Serious: Yes (Other)
  Sender: FDA-Public Use
  Company Number: CA-PFIZER INC-202300122480

PATIENT
  Age: 42 Year
  Sex: Female

DRUGS (4)
  1. METHOTREXATE SODIUM [Suspect]
     Active Substance: METHOTREXATE SODIUM
     Dosage: 1 DF,DOSAGE INFO: UNKNOWN
     Route: 065
  2. IMURAN [Concomitant]
     Active Substance: AZATHIOPRINE
     Dosage: UNK
  3. PREDNISONE [Concomitant]
     Active Substance: PREDNISONE
     Dosage: 30 MG, PREDNISONE CHANGED FROM 35 MG TO 30 MG (6 PILLS).
     Dates: start: 20230315
  4. PREDNISONE [Concomitant]
     Active Substance: PREDNISONE
     Dosage: 6 BACK TO 7 PILLS (35 MG) AND HAVE BEEN TALKING 7 PILLS SINCE
     Dates: start: 20230318

REACTIONS (9)
  - Haemorrhage [Unknown]
  - Drug ineffective [Unknown]
  - Arthralgia [Unknown]
  - Gastrointestinal disorder [Unknown]
  - Secretion discharge [Unknown]
  - Micturition urgency [Unknown]
  - Abdominal pain [Unknown]
  - Muscle spasms [Unknown]
  - Frequent bowel movements [Unknown]

NARRATIVE: CASE EVENT DATE: 20230301
